FAERS Safety Report 4893982-5 (Version None)
Quarter: 2005Q4

REPORT INFORMATION
  Report Type: 
  Country: None (occurrence: None)
  Receive Date: 20051223
  Receipt Date: 20051023
  Transmission Date: 20060501
  Serious: No
  Sender: FDA-Public Use
  Company Number: 2005PV003532

PATIENT
  Age: 68 Year
  Sex: Male
  Weight: 145.151 kg

DRUGS (2)
  1. SYMLIN [Suspect]
     Indication: DIABETES MELLITUS NON-INSULIN-DEPENDENT
     Dosage: 120 MCG; BID; SC
     Route: 058
     Dates: start: 20051006
  2. NOVOFLEX 70/30 [Concomitant]

REACTIONS (1)
  - PRURITUS [None]
